FAERS Safety Report 14443802 (Version 2)
Quarter: 2019Q2

REPORT INFORMATION
  Report Type: Spontaneous
  Country: US (occurrence: US)
  Receive Date: 20180125
  Receipt Date: 20190522
  Transmission Date: 20190711
  Serious: No
  Sender: FDA-Public Use
  Company Number: US-ACTELION-A-NJ2018-166364

PATIENT
  Age: 64 Year
  Sex: Female

DRUGS (1)
  1. OPSUMIT [Suspect]
     Active Substance: MACITENTAN
     Indication: PULMONARY ARTERIAL HYPERTENSION
     Dosage: 10 MG, QD
     Route: 048
     Dates: start: 20171011

REACTIONS (3)
  - Bronchitis [Unknown]
  - Infection susceptibility increased [Unknown]
  - Influenza [Unknown]

NARRATIVE: CASE EVENT DATE: 20180112
